FAERS Safety Report 17798583 (Version 1)
Quarter: 2020Q2

REPORT INFORMATION
  Report Type: Spontaneous
  Country: US (occurrence: US)
  Receive Date: 20200518
  Receipt Date: 20200518
  Transmission Date: 20200714
  Serious: Yes (Hospitalization, Other)
  Sender: FDA-Public Use
  Company Number: US-PFIZER INC-2020195577

PATIENT
  Age: 47 Year
  Sex: Female
  Weight: 45.81 kg

DRUGS (2)
  1. PREGABALIN. [Suspect]
     Active Substance: PREGABALIN
     Indication: COMPLEX REGIONAL PAIN SYNDROME
     Dosage: 75 MG, 2X/DAY
     Route: 048
     Dates: start: 20190129
  2. TRAMADOL. [Concomitant]
     Active Substance: TRAMADOL
     Dosage: UNK

REACTIONS (9)
  - Chest pain [Unknown]
  - Pneumonitis [Unknown]
  - Drug ineffective for unapproved indication [Unknown]
  - Pain [Unknown]
  - Off label use [Unknown]
  - Poisoning [Unknown]
  - Blood pressure decreased [Unknown]
  - Abdominal distension [Unknown]
  - Myocardial infarction [Unknown]

NARRATIVE: CASE EVENT DATE: 20190129
